FAERS Safety Report 8100418-X (Version None)
Quarter: 2012Q1

REPORT INFORMATION
  Report Type: 
  Country: None (occurrence: None)
  Receive Date: 20120129
  Receipt Date: 20111202
  Transmission Date: 20120608
  Serious: No
  Sender: FDA-Public Use
  Company Number: US-ABBOTT-11P-163-0865631-00

PATIENT
  Age: 44 Year
  Sex: Female

DRUGS (4)
  1. HUMIRA [Suspect]
     Indication: CROHN'S DISEASE
     Dates: start: 20110929, end: 20110929
  2. HUMIRA [Suspect]
  3. IRON [Concomitant]
     Indication: PRODUCT USED FOR UNKNOWN INDICATION
     Dosage: DAILY
  4. HUMIRA [Suspect]
     Dates: start: 20111013, end: 20111013

REACTIONS (5)
  - FEELING HOT [None]
  - PYREXIA [None]
  - PAIN [None]
  - FATIGUE [None]
  - HEADACHE [None]
